FAERS Safety Report 7039734-1 (Version None)
Quarter: 2010Q3

REPORT INFORMATION
  Report Type: 
  Country: None (occurrence: None)
  Receive Date: 20100929
  Receipt Date: 20100723
  Transmission Date: 20110219
  Serious: No
  Sender: FDA-Public Use
  Company Number: US-WYE-H16681810

PATIENT
  Age: 69 Year
  Sex: Female

DRUGS (2)
  1. PRISTIQ [Suspect]
     Indication: FLATULENCE
     Dosage: 50 MG 1X PER 1 DAY
     Dates: start: 20100630
  2. ABILIFY [Concomitant]

REACTIONS (1)
  - FLATULENCE [None]
